FAERS Safety Report 7485729-3 (Version None)
Quarter: 2011Q2

REPORT INFORMATION
  Report Type: 
  Country: None (occurrence: None)
  Receive Date: 20110517
  Receipt Date: 20110509
  Transmission Date: 20111010
  Serious: Yes (Hospitalization)
  Sender: FDA-Public Use
  Company Number: AU-MERCK-1105USA00357

PATIENT
  Age: 75 Year
  Sex: Male

DRUGS (2)
  1. VYTORIN [Concomitant]
     Route: 048
  2. JANUMET [Suspect]
     Indication: DIABETES MELLITUS
     Route: 048
     Dates: start: 20110323, end: 20110418

REACTIONS (5)
  - ABDOMINAL PAIN UPPER [None]
  - DRUG INEFFECTIVE [None]
  - PANCREATITIS ACUTE [None]
  - PNEUMONIA [None]
  - BACK PAIN [None]
